FAERS Safety Report 5618394-8 (Version None)
Quarter: 2008Q1

REPORT INFORMATION
  Report Type: 
  Country: None (occurrence: None)
  Receive Date: 20080205
  Receipt Date: 20080205
  Transmission Date: 20080703
  Serious: Yes (Other)
  Sender: FDA-Public Use
  Company Number: None

PATIENT
  Age: 7 Year
  Sex: Male
  Weight: 19.9583 kg

DRUGS (1)
  1. CEPHALEXIN [Suspect]
     Indication: LOCALISED INFECTION
     Dosage: 1 AND 1/4 TSP 3XDAY PO
     Route: 048
     Dates: start: 20080131, end: 20080202

REACTIONS (10)
  - DELIRIUM [None]
  - DISORIENTATION [None]
  - DIZZINESS [None]
  - HYPERSOMNIA [None]
  - ILL-DEFINED DISORDER [None]
  - INCOHERENT [None]
  - PYREXIA [None]
  - SKIN DISORDER [None]
  - SPEECH DISORDER [None]
  - TREMOR [None]
